FAERS Safety Report 6936525-4 (Version None)
Quarter: 2010Q3

REPORT INFORMATION
  Report Type: 
  Country: None (occurrence: None)
  Receive Date: 20100823
  Receipt Date: 20100811
  Transmission Date: 20110219
  Serious: Yes (Other)
  Sender: FDA-Public Use
  Company Number: US-PFIZER INC-2010014938

PATIENT
  Sex: Male
  Weight: 72.562 kg

DRUGS (14)
  1. REVATIO [Suspect]
     Indication: PULMONARY HYPERTENSION
     Dosage: 20 MG, 3X/DAY
     Route: 048
     Dates: start: 20091222, end: 20100101
  2. REVATIO [Suspect]
     Indication: HYPOVENTILATION
  3. DICLOFENAC [Concomitant]
     Indication: ARTHRITIS
     Dosage: 75 MG, UNK
  4. DIGOXIN [Concomitant]
     Indication: CARDIAC DISORDER
     Dosage: 0.125 MG, UNK
  5. FUROSEMIDE [Concomitant]
     Indication: FLUID RETENTION
     Dosage: 20 MG, UNK
  6. ACEBUTOLOL [Concomitant]
     Dosage: 200 MG, 2X/DAY
  7. KLOR-CON [Concomitant]
     Dosage: 20 MG, 1X/DAY
  8. LISINOPRIL [Concomitant]
     Dosage: 2.5 MG, 1X/DAY
  9. AMLODIPINE [Concomitant]
     Dosage: 2.5 MG, UNK
  10. DIAZEPAM [Concomitant]
     Dosage: 5 MG, AS NEEDED
  11. PANADEINE CO [Concomitant]
     Dosage: [ACETAMINOPHEN 300 MG]/[CODEINE 30 MG]
  12. IPRATROPIUM BROMIDE AND ALBUTEROL SULFATE [Concomitant]
     Indication: DYSPNOEA
     Dosage: THRICE A DAY
  13. PULMICORT [Concomitant]
     Dosage: TWICE A DAY
  14. BUDESONIDE [Concomitant]
     Indication: DYSPNOEA
     Dosage: TWICE A DAY
     Route: 055

REACTIONS (9)
  - DRUG INEFFECTIVE [None]
  - DYSPNOEA [None]
  - FEAR OF FALLING [None]
  - GAIT DISTURBANCE [None]
  - MUSCULOSKELETAL PAIN [None]
  - NASOPHARYNGITIS [None]
  - PAIN IN EXTREMITY [None]
  - VISUAL IMPAIRMENT [None]
  - WEIGHT DECREASED [None]
